FAERS Safety Report 5748304-4 (Version None)
Quarter: 2008Q2

REPORT INFORMATION
  Report Type: 
  Country: None (occurrence: None)
  Receive Date: 20080523
  Receipt Date: 20080515
  Transmission Date: 20081010
  Serious: Yes (Other)
  Sender: FDA-Public Use
  Company Number: GB-AMGEN-UK280314

PATIENT
  Sex: Female

DRUGS (1)
  1. MIMPARA [Suspect]
     Indication: HYPERPARATHYROIDISM SECONDARY
     Route: 048
     Dates: start: 20061201

REACTIONS (1)
  - HYPOPHOSPHATAEMIA [None]
